FAERS Safety Report 11830777 (Version 1)
Quarter: 2015Q4

REPORT INFORMATION
  Report Type: Spontaneous
  Country: US (occurrence: US)
  Receive Date: 20151214
  Receipt Date: 20151214
  Transmission Date: 20160305
  Serious: No
  Sender: FDA-Public Use
  Company Number: US-ASTRAZENECA-2015SF23046

PATIENT
  Sex: Female
  Weight: 108.9 kg

DRUGS (1)
  1. SYMBICORT [Suspect]
     Active Substance: BUDESONIDE\FORMOTEROL FUMARATE DIHYDRATE
     Indication: CHRONIC OBSTRUCTIVE PULMONARY DISEASE
     Dosage: 160 / 4.5 MCG TWO PUFFS TWO TIMES A DAY
     Route: 055
     Dates: start: 201506

REACTIONS (2)
  - Body height decreased [Not Recovered/Not Resolved]
  - Arthritis [Not Recovered/Not Resolved]
